FAERS Safety Report 8450044-8 (Version None)
Quarter: 2012Q2

REPORT INFORMATION
  Report Type: 
  Country: None (occurrence: None)
  Receive Date: 20120613
  Receipt Date: 20120529
  Transmission Date: 20120825
  Serious: Yes (Other)
  Sender: FDA-Public Use
  Company Number: SPI201200126

PATIENT
  Age: 46 Year
  Sex: Male
  Weight: 96.1 kg

DRUGS (3)
  1. PREVACID [Concomitant]
  2. AMITIZA [Suspect]
     Indication: CONSTIPATION
     Dosage: 24 MCG, TID, ORAL
     Route: 048
     Dates: start: 20110101
  3. DILAUDID [Concomitant]

REACTIONS (5)
  - MIGRAINE [None]
  - GASTROINTESTINAL OBSTRUCTION [None]
  - DIARRHOEA [None]
  - VOMITING [None]
  - VITREOUS FLOATERS [None]
